FAERS Safety Report 12967669 (Version 1)
Quarter: 2016Q4

REPORT INFORMATION
  Report Type: Spontaneous
  Country: US (occurrence: US)
  Receive Date: 20161123
  Receipt Date: 20161123
  Transmission Date: 20170207
  Serious: No
  Sender: FDA-Public Use
  Company Number: US-TEVA-698416USA

PATIENT
  Sex: Female

DRUGS (2)
  1. OXYBUTYNIN [Suspect]
     Active Substance: OXYBUTYNIN
  2. MYRBETRIQ [Suspect]
     Active Substance: MIRABEGRON
     Dates: start: 2014

REACTIONS (2)
  - Dry eye [Unknown]
  - Malaise [Unknown]
